FAERS Safety Report 9162583 (Version 1)
Quarter: 2013Q1

REPORT INFORMATION
  Report Type: Spontaneous
  Country: GR (occurrence: None)
  Receive Date: 20130225
  Receipt Date: 20130225
  Transmission Date: 20140127
  Serious: No
  Sender: FDA-Public Use
  Company Number: AUR-APL-2013-01471

PATIENT
  Sex: Female

DRUGS (11)
  1. METFORMIN (METFORMIN) [Suspect]
     Indication: DIABETES MELLITUS
     Route: 048
  2. OMEPRAZOLE (OMEPRAZOLE) [Suspect]
     Indication: PROPHYLAXIS
     Route: 048
  3. ATORVASTATIN CALCIUM (ATORVASTATIN CALCIUM) [Suspect]
     Indication: DYSLIPIDAEMIA
     Route: 048
  4. ATENOLOL (ATENOLOL) [Suspect]
     Indication: HYPERTENSION
     Route: 048
  5. FLUOXETINE HCL [Suspect]
     Indication: ANXIETY
     Route: 048
  6. GLIMEPIRIDE (GLIMEPIRIDE) [Suspect]
     Indication: DIABETES MELLITUS
     Route: 048
  7. VALSARTAN [Suspect]
     Indication: HYPERTENSION
     Route: 048
  8. INDAPAMIDE [Suspect]
     Indication: HYPERTENSION
  9. BROMAZEPAM (BROMAZEPAM) [Suspect]
     Indication: DEPRESSION
     Route: 048
  10. TRIMETAZIDINE [Suspect]
     Indication: VERTIGO
     Route: 048
  11. LACIDIPINE [Suspect]
     Indication: HYPERTENSION
     Route: 048

REACTIONS (3)
  - Fatigue [None]
  - Hepatomegaly [None]
  - Drug-induced liver injury [None]
